FAERS Safety Report 10606539 (Version 1)
Quarter: 2014Q4

REPORT INFORMATION
  Report Type: Spontaneous
  Country: US (occurrence: None)
  Receive Date: 20141124
  Receipt Date: 20141124
  Transmission Date: 20150529
  Serious: No
  Sender: FDA-Public Use
  Company Number: None

PATIENT
  Age: 42 Year
  Sex: Female
  Weight: 56.7 kg

DRUGS (1)
  1. CORTICO STEROID, NOT SPECIFIED [Suspect]
     Active Substance: UNSPECIFIED INGREDIENT

REACTIONS (2)
  - Unevaluable event [None]
  - Soft tissue disorder [None]
